FAERS Safety Report 4756695-6 (Version None)
Quarter: 2005Q3

REPORT INFORMATION
  Report Type: 
  Country: None (occurrence: None)
  Receive Date: 20050830
  Receipt Date: 20050531
  Transmission Date: 20060218
  Serious: Yes (Hospitalization)
  Sender: FDA-Public Use
  Company Number: US-MERCK-0506USA00365

PATIENT
  Age: 70 Year
  Sex: Male
  Weight: 83 kg

DRUGS (5)
  1. COMBIVENT [Concomitant]
     Route: 065
  2. VIOXX [Suspect]
     Indication: ARTHRALGIA
     Route: 048
     Dates: start: 20000927, end: 20040930
  3. ALBUTEROL [Concomitant]
     Route: 065
  4. ULTRAM [Concomitant]
     Indication: BACK PAIN
     Route: 065
     Dates: start: 19980128, end: 20020409
  5. NEXIUM [Concomitant]
     Route: 065

REACTIONS (9)
  - BLOOD CHOLESTEROL INCREASED [None]
  - CARDIAC FAILURE CONGESTIVE [None]
  - CHRONIC OBSTRUCTIVE PULMONARY DISEASE [None]
  - HYPERTENSION [None]
  - INFECTION [None]
  - MYOCARDIAL INFARCTION [None]
  - PERIPHERAL VASCULAR DISORDER [None]
  - PNEUMONIA [None]
  - SKIN DISORDER [None]
